FAERS Safety Report 26211963 (Version 1)
Quarter: 2025Q4

REPORT INFORMATION
  Report Type: Report from Study
  Country: US (occurrence: US)
  Receive Date: 20251230
  Receipt Date: 20251230
  Transmission Date: 20260117
  Serious: No
  Sender: JOHNSON AND JOHNSON
  Company Number: US-JNJFOC-20251235138

PATIENT
  Age: 79 Year
  Sex: Male

DRUGS (1)
  1. TREMFYA [Suspect]
     Active Substance: GUSELKUMAB
     Indication: Crohn^s disease
     Route: 058
     Dates: start: 20251211

REACTIONS (6)
  - Dizziness [Not Recovered/Not Resolved]
  - Injection site haemorrhage [Unknown]
  - Liver disorder [Unknown]
  - Back pain [Not Recovered/Not Resolved]
  - Pain in extremity [Unknown]
  - Injection site injury [Unknown]

NARRATIVE: CASE EVENT DATE: 20251212
